FAERS Safety Report 5581429-5 (Version None)
Quarter: 2007Q4

REPORT INFORMATION
  Report Type: 
  Country: None (occurrence: None)
  Receive Date: 20071231
  Receipt Date: 20071231
  Transmission Date: 20080405
  Serious: Yes (Other)
  Sender: FDA-Public Use
  Company Number: None

PATIENT
  Age: 18 Year
  Sex: Male
  Weight: 88.4514 kg

DRUGS (2)
  1. ZOLOFT [Suspect]
     Indication: DEPRESSION
     Dosage: 25MG DAILY PO
     Route: 048
     Dates: start: 20071017, end: 20071229
  2. ZOLOFT [Suspect]
     Indication: OBSESSIVE-COMPULSIVE DISORDER
     Dosage: 25MG DAILY PO
     Route: 048
     Dates: start: 20071017, end: 20071229

REACTIONS (3)
  - AGGRESSION [None]
  - ANGER [None]
  - DYSPEPSIA [None]
